FAERS Safety Report 7807662-7 (Version None)
Quarter: 2011Q4

REPORT INFORMATION
  Report Type: 
  Country: None (occurrence: None)
  Receive Date: 20111011
  Receipt Date: 20110928
  Transmission Date: 20120403
  Serious: Yes (Death)
  Sender: FDA-Public Use
  Company Number: FR-MYLANLABS-2011S1020620

PATIENT
  Age: 62 Year
  Sex: Female

DRUGS (1)
  1. METHOTREXATE [Suspect]
     Indication: DERMATOMYOSITIS
     Route: 065

REACTIONS (2)
  - PULMONARY TUBERCULOSIS [None]
  - DISSEMINATED TUBERCULOSIS [None]
